FAERS Safety Report 24417602 (Version 1)
Quarter: 2024Q4

REPORT INFORMATION
  Report Type: Spontaneous
  Country: GB (occurrence: GB)
  Receive Date: 20241009
  Receipt Date: 20241009
  Transmission Date: 20250115
  Serious: Yes (Hospitalization, Other)
  Sender: PFIZER
  Company Number: None

PATIENT
  Age: 58 Year

DRUGS (11)
  1. PACLITAXEL [Suspect]
     Active Substance: PACLITAXEL
     Dosage: UNK
  2. BEVACIZUMAB [Suspect]
     Active Substance: BEVACIZUMAB
  3. CARBOPLATIN [Suspect]
     Active Substance: CARBOPLATIN
  4. ANASTROZOLE [Concomitant]
     Active Substance: ANASTROZOLE
     Dosage: 1 MG TABLETS ONE TO BE TAKEN EACH DAY
  5. MORPHINE [Concomitant]
     Active Substance: MORPHINE
     Dosage: FREQ:3 H;10 MG / 5 ML ORAL SOLUTION 12.5 ML ( 25 MG) TO BE TAKEN EVERY THREE HOURS WHEN REQUIRED FOR
  6. MORPHINE [Concomitant]
     Active Substance: MORPHINE
     Dosage: FREQ:12 H;MST CONTINUES 60 MG TABLETS ONE TO BE TAKEN EVERY 12 HOURS. TDD 70 MG BD
  7. MORPHINE [Concomitant]
     Active Substance: MORPHINE
     Dosage: FREQ:12 H;MST CONTINUES 10 MG TABLETS ONE TO BE TAKEN EVERY 12 HOURS
  8. DOCUSATE [Concomitant]
     Active Substance: DOCUSATE
     Dosage: 100 MG CAPSULES ONE TO BE TAKEN TWICE A DAY
  9. LANSOPRAZOLE [Concomitant]
     Active Substance: LANSOPRAZOLE
     Dosage: 30 MG GASTRO - RESISTANT CAPSULES ONE TO BE TAKEN AT NIGHT
  10. SENNA S [Concomitant]
     Active Substance: DOCUSATE SODIUM\SENNA LEAF
     Dosage: 7.5 MG TABLETS TWO TO BE TAKEN AT NIGHT
  11. PREGABALIN [Concomitant]
     Active Substance: PREGABALIN
     Dosage: 75 MG CAPSULES ONE TWICE A DAY

REACTIONS (1)
  - Colitis [Unknown]
